FAERS Safety Report 5467432-4 (Version None)
Quarter: 2007Q3

REPORT INFORMATION
  Report Type: 
  Country: None (occurrence: None)
  Receive Date: 20070925
  Receipt Date: 20070913
  Transmission Date: 20080115
  Serious: Yes (Other)
  Sender: FDA-Public Use
  Company Number: GB-PFIZER INC-2007077302

PATIENT
  Age: 81 Year
  Sex: Female
  Weight: 83 kg

DRUGS (5)
  1. PREGABALIN [Suspect]
     Indication: NEUROPATHY
     Route: 048
     Dates: start: 20070813, end: 20070830
  2. BENDROFLUMETHIAZIDE [Concomitant]
     Route: 048
  3. LOPERAMIDE HCL [Concomitant]
     Route: 048
  4. SOTALOL HYDROCHLORIDE [Concomitant]
     Route: 048
  5. WARFARIN SODIUM [Concomitant]
     Route: 048

REACTIONS (2)
  - EUPHORIC MOOD [None]
  - PRESSURE OF SPEECH [None]
